FAERS Safety Report 11568670 (Version 1)
Quarter: 2015Q3

REPORT INFORMATION
  Report Type: Spontaneous
  Country: IT (occurrence: IT)
  Receive Date: 20150929
  Receipt Date: 20150929
  Transmission Date: 20151125
  Serious: Yes (Other)
  Sender: FDA-Public Use
  Company Number: IT-TEVA-596038ACC

PATIENT
  Age: 43 Year
  Sex: Female
  Weight: 70 kg

DRUGS (1)
  1. OLANZAPINA TEVA - TEVA B.V. [Suspect]
     Active Substance: OLANZAPINE
     Indication: BIPOLAR DISORDER
     Dosage: 10 MILLIGRAM DAILY; 10 MG DAILY
     Route: 048
     Dates: start: 20150911

REACTIONS (6)
  - Presyncope [Recovered/Resolved]
  - Hallucination [Recovered/Resolved]
  - Vertigo [Recovered/Resolved]
  - Choking [Recovered/Resolved]
  - Choking sensation [Recovered/Resolved]
  - Paraesthesia [Recovered/Resolved]

NARRATIVE: CASE EVENT DATE: 20150912
